FAERS Safety Report 15981614 (Version 1)
Quarter: 2019Q1

REPORT INFORMATION
  Report Type: Spontaneous
  Country: SA (occurrence: SA)
  Receive Date: 20190219
  Receipt Date: 20190219
  Transmission Date: 20190418
  Serious: Yes (Life-Threatening, Hospitalization)
  Sender: FDA-Public Use
  Company Number: None

PATIENT

DRUGS (2)
  1. PERTUZUMAB. [Suspect]
     Active Substance: PERTUZUMAB
  2. TRASTUZUMAB. [Suspect]
     Active Substance: TRASTUZUMAB

REACTIONS (2)
  - Cardiotoxicity [None]
  - Ejection fraction decreased [None]
